FAERS Safety Report 17914447 (Version 1)
Quarter: 2020Q2

REPORT INFORMATION
  Report Type: Spontaneous
  Country: US (occurrence: US)
  Receive Date: 20200618
  Receipt Date: 20200618
  Transmission Date: 20200714
  Serious: No
  Sender: FDA-Public Use
  Company Number: US-ADAMAS PHARMA, LLC-2020ADA00579

PATIENT
  Age: 65 Year
  Sex: Male
  Weight: 125.62 kg

DRUGS (12)
  1. CARBIDOPA/LEVODOPA IR [Concomitant]
  2. RASAGILINE. [Concomitant]
     Active Substance: RASAGILINE
  3. VITAMIN B12 [Concomitant]
     Active Substance: CYANOCOBALAMIN
  4. MELOXICAM. [Concomitant]
     Active Substance: MELOXICAM
  5. TYLENOL WITH CODEINE [Concomitant]
     Active Substance: ACETAMINOPHEN\CODEINE PHOSPHATE
  6. ROPINIROLE. [Concomitant]
     Active Substance: ROPINIROLE
  7. GOCOVRI [Suspect]
     Active Substance: AMANTADINE
     Dosage: 1X/DAY X 7 DAYS
     Route: 048
     Dates: start: 20200114, end: 20200211
  8. GABAPENTIN. [Concomitant]
     Active Substance: GABAPENTIN
  9. TRAMADOL. [Concomitant]
     Active Substance: TRAMADOL
  10. AMLODIPINE [Concomitant]
     Active Substance: AMLODIPINE BESYLATE
  11. ATORVASTATIN [Concomitant]
     Active Substance: ATORVASTATIN
  12. GOCOVRI [Suspect]
     Active Substance: AMANTADINE
     Dosage: 137 MG, 1X/DAY X 7 DAYS
     Route: 048
     Dates: start: 20200107, end: 20200113

REACTIONS (1)
  - Fall [Recovered/Resolved]

NARRATIVE: CASE EVENT DATE: 20200211
